FAERS Safety Report 4492957-8 (Version None)
Quarter: 2004Q4

REPORT INFORMATION
  Report Type: 
  Country: None (occurrence: None)
  Receive Date: 20041029
  Receipt Date: 20041014
  Transmission Date: 20050328
  Serious: Yes (Hospitalization)
  Sender: FDA-Public Use
  Company Number: 2004AP05395

PATIENT
  Age: 46 Year
  Sex: Female

DRUGS (2)
  1. NOLVADEX [Suspect]
     Indication: BREAST CANCER
     Dosage: 20 MG DAILY PO
     Route: 048
     Dates: start: 20030116
  2. RADIATION THERAPY [Suspect]
     Indication: BREAST CANCER
     Dosage: 50 GY + BOOST 7.5 GY TO REMAINING BREAST
     Dates: start: 20030212, end: 20030324

REACTIONS (9)
  - BODY TEMPERATURE INCREASED [None]
  - COUGH [None]
  - CRYPTOGENIC ORGANIZING PNEUMONIA [None]
  - FIBROSIS [None]
  - HEADACHE [None]
  - HEART RATE INCREASED [None]
  - INFECTION [None]
  - PYREXIA [None]
  - RESPIRATORY RATE INCREASED [None]
